FAERS Safety Report 10300119 (Version 1)
Quarter: 2014Q3

REPORT INFORMATION
  Report Type: Spontaneous
  Country: CN (occurrence: CN)
  Receive Date: 20140711
  Receipt Date: 20140711
  Transmission Date: 20150326
  Serious: Yes (Other)
  Sender: FDA-Public Use
  Company Number: CN-GLAXOSMITHKLINE-B1013194A

PATIENT
  Age: 30 Year
  Sex: Female
  Weight: 60 kg

DRUGS (3)
  1. ZINACEF [Suspect]
     Active Substance: CEFUROXIME SODIUM
     Indication: INFECTION
     Dosage: 1.5G PER DAY
     Route: 042
     Dates: start: 20140322, end: 20140322
  2. 0.9% SALINE [Concomitant]
     Route: 042
  3. TCM [Concomitant]
     Indication: INCREASED UPPER AIRWAY SECRETION

REACTIONS (3)
  - Eyelid oedema [Recovered/Resolved]
  - Choking sensation [Recovering/Resolving]
  - Laryngeal oedema [Recovering/Resolving]

NARRATIVE: CASE EVENT DATE: 20140322
